FAERS Safety Report 16464591 (Version 1)
Quarter: 2019Q2

REPORT INFORMATION
  Report Type: Spontaneous
  Country: HR (occurrence: HR)
  Receive Date: 20190621
  Receipt Date: 20190621
  Transmission Date: 20190711
  Serious: Yes (Other)
  Sender: FDA-Public Use
  Company Number: HR-ASTRAZENECA-2019SE87393

PATIENT
  Sex: Male

DRUGS (2)
  1. NORMABEL [Suspect]
     Active Substance: DIAZEPAM
     Route: 048
     Dates: start: 20190325, end: 20190325
  2. QUETIAPINE. [Suspect]
     Active Substance: QUETIAPINE
     Dosage: 6000.0MG UNKNOWN
     Route: 048
     Dates: start: 20190325, end: 20190325

REACTIONS (6)
  - Loss of consciousness [Unknown]
  - Intentional overdose [Unknown]
  - Somnolence [Unknown]
  - Speech disorder [Unknown]
  - Suicide attempt [Unknown]
  - Depressed level of consciousness [Unknown]

NARRATIVE: CASE EVENT DATE: 20190325
